FAERS Safety Report 17962708 (Version 1)
Quarter: 2020Q2

REPORT INFORMATION
  Report Type: Spontaneous
  Country: US (occurrence: US)
  Receive Date: 20200630
  Receipt Date: 20200630
  Transmission Date: 20200714
  Serious: No
  Sender: FDA-Public Use
  Company Number: US-INDIVIOR LIMITED-INDV-125094-2020

PATIENT
  Sex: Male

DRUGS (4)
  1. BUPRENORPHINE/NALOXONE [Interacting]
     Active Substance: BUPRENORPHINE\NALOXONE
     Indication: DRUG DEPENDENCE
     Dosage: 16 MILLIGRAM, QD
     Route: 060
  2. LURASIDONE [Interacting]
     Active Substance: LURASIDONE
     Indication: PRODUCT USED FOR UNKNOWN INDICATION
     Dosage: 100 MILLIGRAM, QD
     Route: 065
  3. SUBLOCADE [Suspect]
     Active Substance: BUPRENORPHINE
     Indication: DRUG DEPENDENCE
     Dosage: 300 MILLIGRAM, QMO
     Route: 058
     Dates: start: 20200527
  4. LURASIDONE [Interacting]
     Active Substance: LURASIDONE
     Dosage: 40 MILLIGRAM, QD
     Route: 065

REACTIONS (5)
  - Dry mouth [Recovered/Resolved]
  - Anxiety [Recovered/Resolved]
  - Sedation [Recovered/Resolved]
  - Drug interaction [Not Recovered/Not Resolved]
  - Constipation [Recovered/Resolved]

NARRATIVE: CASE EVENT DATE: 20200601
